FAERS Safety Report 9054710 (Version 1)
Quarter: 2013Q1

REPORT INFORMATION
  Report Type: Spontaneous
  Country: GB (occurrence: GB)
  Receive Date: 20130208
  Receipt Date: 20130208
  Transmission Date: 20140127
  Serious: Yes (Death)
  Sender: FDA-Public Use
  Company Number: GB-OTSUKA-EU-2013-10032

PATIENT
  Sex: 0

DRUGS (1)
  1. SAMSCA [Suspect]

REACTIONS (1)
  - Intestinal ischaemia [Fatal]
